FAERS Safety Report 25992009 (Version 2)
Quarter: 2025Q4

REPORT INFORMATION
  Report Type: Spontaneous
  Country: US (occurrence: US)
  Receive Date: 20251103
  Receipt Date: 20251111
  Transmission Date: 20260118
  Serious: Yes (Other)
  Sender: NOVO NORDISK
  Company Number: US-NOVOPROD-1551438

PATIENT
  Age: 65 Year
  Sex: Female

DRUGS (3)
  1. WEGOVY [Suspect]
     Active Substance: SEMAGLUTIDE
     Indication: Weight control
     Dosage: 0.25 MG
     Route: 058
     Dates: start: 2023
  2. WEGOVY [Suspect]
     Active Substance: SEMAGLUTIDE
     Dosage: RE-STARTED 0.5 MG QW
     Route: 058
     Dates: start: 20251022
  3. WEGOVY [Suspect]
     Active Substance: SEMAGLUTIDE
     Dosage: 0.5 MG, QW
     Route: 058
     Dates: end: 2025

REACTIONS (1)
  - Ovarian cystectomy [Recovered/Resolved]

NARRATIVE: CASE EVENT DATE: 20250701
